FAERS Safety Report 4931343-0 (Version None)
Quarter: 2006Q1

REPORT INFORMATION
  Report Type: 
  Country: None (occurrence: None)
  Receive Date: 20060228
  Receipt Date: 20060215
  Transmission Date: 20060701
  Serious: Yes (Hospitalization, Other)
  Sender: FDA-Public Use
  Company Number: 2006015665

PATIENT
  Age: 57 Year
  Sex: Male
  Weight: 78.0187 kg

DRUGS (14)
  1. SUTENT [Suspect]
     Indication: METASTATIC RENAL CELL CARCINOMA
     Dosage: 50 MG (50 MG, 1 IN 1 D), ORAL
     Route: 048
     Dates: start: 20060112
  2. PREDNISONE TAB [Concomitant]
  3. TESTOSTERONE [Concomitant]
  4. ATENOLOL [Concomitant]
  5. PREVACID [Concomitant]
  6. NITROGLYCERIN [Concomitant]
  7. VICODIN [Concomitant]
  8. SYNTHROID [Concomitant]
  9. COMPAZINE [Concomitant]
  10. HYDROCHLOROTHIAZIDE [Concomitant]
  11. ZOCOR [Concomitant]
  12. PROTONIX [Concomitant]
  13. LORTAB [Concomitant]
  14. REGLAN [Concomitant]

REACTIONS (4)
  - CHILLS [None]
  - DIARRHOEA [None]
  - EYE PAIN [None]
  - RENAL FAILURE ACUTE [None]
